FAERS Safety Report 21490971 (Version 1)
Quarter: 2022Q4

REPORT INFORMATION
  Report Type: Other
  Country: None (occurrence: US)
  Receive Date: 20221021
  Receipt Date: 20221021
  Transmission Date: 20230113
  Serious: No
  Sender: FDA-Public Use
  Company Number: US-Ascent Pharmaceuticals, Inc.-2134061

PATIENT

DRUGS (1)
  1. DEXTROAMPHET SACCHARAT, AMPHET ASPARTATE, DEXTROAMPHET SULFATE AND AMP [Suspect]
     Active Substance: AMPHETAMINE ASPARTATE\AMPHETAMINE SULFATE\DEXTROAMPHETAMINE SACCHARATE\DEXTROAMPHETAMINE SULFATE
     Indication: Product used for unknown indication
     Route: 065

REACTIONS (12)
  - Illness [Unknown]
  - Diarrhoea [Unknown]
  - Constipation [Unknown]
  - Abnormal behaviour [Unknown]
  - Depressed mood [Unknown]
  - Irritability [Unknown]
  - Fatigue [Unknown]
  - Impaired work ability [Unknown]
  - Feeling abnormal [Unknown]
  - Somnolence [Unknown]
  - Derealisation [Unknown]
  - Apathy [Unknown]
